FAERS Safety Report 26139740 (Version 1)
Quarter: 2025Q4

REPORT INFORMATION
  Report Type: Spontaneous
  Country: CN (occurrence: CN)
  Receive Date: 20251210
  Receipt Date: 20251210
  Transmission Date: 20260119
  Serious: Yes (Life-Threatening, Other)
  Sender: NOVO NORDISK
  Company Number: None

PATIENT
  Age: 70 Year
  Sex: Female
  Weight: 61 kg

DRUGS (3)
  1. INSULIN ASPART [Suspect]
     Active Substance: INSULIN ASPART
     Indication: Diabetes mellitus
     Dosage: 12 IU, BID
     Route: 058
     Dates: start: 20250301
  2. INSULIN ASPART [Suspect]
     Active Substance: INSULIN ASPART
     Dosage: ADJUST THE INSULIN DOSE
     Route: 058
  3. ACARBOSE [Concomitant]
     Active Substance: ACARBOSE
     Indication: Diabetes mellitus
     Dosage: 50 MG, TID
     Route: 048
     Dates: start: 20250903

REACTIONS (3)
  - Hypoglycaemic coma [Recovering/Resolving]
  - Hypophagia [Unknown]
  - Dosage not adjusted [Unknown]

NARRATIVE: CASE EVENT DATE: 20251127
